FAERS Safety Report 8208808-1 (Version None)
Quarter: 2012Q1

REPORT INFORMATION
  Report Type: 
  Country: None (occurrence: None)
  Receive Date: 20120314
  Receipt Date: 20120307
  Transmission Date: 20120608
  Serious: Yes (Other)
  Sender: FDA-Public Use
  Company Number: BR-PFIZER INC-2012000855

PATIENT
  Age: 71 Year
  Sex: Male
  Weight: 74 kg

DRUGS (7)
  1. ACTOS [Concomitant]
     Dosage: UNK, IN THE MORNING
  2. SUTENT [Suspect]
     Indication: RENAL CANCER METASTATIC
     Dosage: 37.5 MG (ONE CAPSULE), 1X/DAY
     Route: 048
     Dates: start: 20111221
  3. DIOVAN [Concomitant]
     Dosage: 40 MG, 1X/DAY (IN THE MORNING)
  4. TAMSULOSIN HCL [Concomitant]
     Dosage: 0.4 MG, 3X/WEEK
  5. ALPRAZOLAM [Concomitant]
     Dosage: 0.5 MG, 1X/DAY (AT NIGHT)
  6. SUTENT [Suspect]
     Indication: RENAL CANCER
  7. CRESTOR [Concomitant]
     Dosage: 10 MG, 3 TIMES WEEKLY

REACTIONS (13)
  - FALL [None]
  - ANAL INJURY [None]
  - SKIN EXFOLIATION [None]
  - MUSCULOSKELETAL CHEST PAIN [None]
  - ERYTHEMA [None]
  - NAUSEA [None]
  - BLISTER [None]
  - CONSTIPATION [None]
  - BLOOD CALCIUM DECREASED [None]
  - NAIL INFECTION [None]
  - DIARRHOEA [None]
  - WOUND [None]
  - PLATELET COUNT DECREASED [None]
